FAERS Safety Report 7769101-4 (Version None)
Quarter: 2011Q3

REPORT INFORMATION
  Report Type: 
  Country: None (occurrence: None)
  Receive Date: 20110922
  Receipt Date: 20110420
  Transmission Date: 20111222
  Serious: Yes (Other)
  Sender: FDA-Public Use
  Company Number: US-ASTRAZENECA-2011SE10105

PATIENT
  Age: 48 Year
  Sex: Female
  Weight: 52.2 kg

DRUGS (7)
  1. NAPROXEN (ALEVE) [Concomitant]
  2. TYLENOL-500 [Concomitant]
  3. SEROQUEL XR [Suspect]
     Indication: PERIPHERAL ARTERIAL OCCLUSIVE DISEASE
     Route: 048
  4. SEROQUEL XR [Suspect]
     Route: 048
     Dates: start: 20100301
  5. VALIUM [Concomitant]
     Indication: ANXIETY
  6. FROVA [Concomitant]
     Indication: HEADACHE
  7. METHADONE HCL [Concomitant]

REACTIONS (3)
  - THERAPEUTIC RESPONSE UNEXPECTED [None]
  - DRUG DOSE OMISSION [None]
  - SUICIDAL IDEATION [None]
